FAERS Safety Report 11091469 (Version 1)
Quarter: 2015Q2

REPORT INFORMATION
  Report Type: Report from Study
  Country: US (occurrence: US)
  Receive Date: 20150505
  Receipt Date: 20150505
  Transmission Date: 20150821
  Serious: Yes (Hospitalization, Other)
  Sender: FDA-Public Use
  Company Number: US-EMD SERONO-7244081

PATIENT
  Age: 62 Year
  Sex: Male
  Weight: 88 kg

DRUGS (6)
  1. METHADONE [Concomitant]
     Active Substance: METHADONE HYDROCHLORIDE
     Indication: RENAL PAIN
  2. REBIF [Suspect]
     Active Substance: INTERFERON BETA-1A
     Indication: SECONDARY PROGRESSIVE MULTIPLE SCLEROSIS
     Route: 058
     Dates: start: 20130614, end: 20130924
  3. LISINOPRIL. [Concomitant]
     Active Substance: LISINOPRIL
     Indication: HYPERTENSION
  4. REBIF [Suspect]
     Active Substance: INTERFERON BETA-1A
     Route: 058
     Dates: start: 20150318
  5. SPIRONOLACTONE. [Concomitant]
     Active Substance: SPIRONOLACTONE
     Indication: HYPERTENSION
  6. METHADONE [Concomitant]
     Active Substance: METHADONE HYDROCHLORIDE
     Indication: BACK PAIN

REACTIONS (14)
  - Hypertension [Unknown]
  - Cardiac failure congestive [Not Recovered/Not Resolved]
  - Right ventricular failure [Not Recovered/Not Resolved]
  - Renal failure [Not Recovered/Not Resolved]
  - Atrial fibrillation [Unknown]
  - Urinary tract infection staphylococcal [Not Recovered/Not Resolved]
  - Streptococcal urinary tract infection [Not Recovered/Not Resolved]
  - Head injury [Unknown]
  - Dysstasia [Unknown]
  - Atrial flutter [Unknown]
  - Kidney infection [Not Recovered/Not Resolved]
  - Injury associated with device [Unknown]
  - Fall [Unknown]
  - Mass [Not Recovered/Not Resolved]

NARRATIVE: CASE EVENT DATE: 201310
